FAERS Safety Report 7241599-X (Version None)
Quarter: 2011Q1

REPORT INFORMATION
  Report Type: 
  Country: None (occurrence: None)
  Receive Date: 20110124
  Receipt Date: 20110113
  Transmission Date: 20110831
  Serious: Yes (Hospitalization)
  Sender: FDA-Public Use
  Company Number: IT-ASTRAZENECA-2010SE54318

PATIENT
  Age: 78 Year
  Sex: Male

DRUGS (6)
  1. SEROQUEL [Suspect]
     Indication: AGITATION
     Route: 048
     Dates: start: 20100815, end: 20100911
  2. SEROQUEL [Suspect]
     Route: 048
     Dates: start: 20100911
  3. SEROQUEL [Suspect]
     Route: 048
     Dates: start: 20100911
  4. SEROQUEL [Suspect]
     Indication: PSYCHOTIC DISORDER
     Route: 048
     Dates: start: 20100815, end: 20100911
  5. MINIAS [Concomitant]
     Indication: PSYCHOTIC DISORDER
     Route: 048
     Dates: start: 20090911, end: 20100911
  6. MINIAS [Concomitant]
     Indication: AGITATION
     Route: 048
     Dates: start: 20090911, end: 20100911

REACTIONS (2)
  - CONVULSION [None]
  - COGNITIVE DISORDER [None]
